FAERS Safety Report 8305383-8 (Version None)
Quarter: 2012Q2

REPORT INFORMATION
  Report Type: 
  Country: None (occurrence: None)
  Receive Date: 20120423
  Receipt Date: 20120412
  Transmission Date: 20120825
  Serious: Yes (Other)
  Sender: FDA-Public Use
  Company Number: FR-ASTRAZENECA-2012SE22867

PATIENT
  Age: 55 Year
  Sex: Female

DRUGS (3)
  1. ZYPREXA [Concomitant]
     Indication: MANIA
  2. ANAFRANYL [Concomitant]
     Indication: MANIA
  3. QUETIAPINE FUMARATE [Suspect]
     Indication: MANIA
     Route: 048

REACTIONS (1)
  - ELECTROCARDIOGRAM QT PROLONGED [None]
